FAERS Safety Report 24278285 (Version 3)
Quarter: 2024Q3

REPORT INFORMATION
  Report Type: Spontaneous
  Country: US (occurrence: US)
  Receive Date: 20240903
  Receipt Date: 20240919
  Transmission Date: 20241017
  Serious: Yes (Other)
  Sender: BAYER
  Company Number: US-BAYER-2024A126049

PATIENT
  Sex: Female

DRUGS (1)
  1. MIRENA [Suspect]
     Active Substance: LEVONORGESTREL
     Dosage: 20?G/DAY
     Route: 015

REACTIONS (2)
  - Embedded device [Not Recovered/Not Resolved]
  - Amenorrhoea [None]
